FAERS Safety Report 10081327 (Version 2)
Quarter: 2014Q2

REPORT INFORMATION
  Report Type: Report from Study
  Country: US (occurrence: US)
  Receive Date: 20140416
  Receipt Date: 20140429
  Transmission Date: 20141212
  Serious: Yes (Hospitalization)
  Sender: FDA-Public Use
  Company Number: US-JNJFOC-20140407619

PATIENT
  Age: 56 Year
  Sex: Male
  Weight: 112.95 kg

DRUGS (1)
  1. STELARA [Suspect]
     Indication: PSORIASIS
     Route: 058
     Dates: start: 201008

REACTIONS (2)
  - Osteomyelitis [Recovered/Resolved]
  - Cellulitis [Recovered/Resolved]
